FAERS Safety Report 6244671-6 (Version None)
Quarter: 2009Q2

REPORT INFORMATION
  Report Type: 
  Country: None (occurrence: None)
  Receive Date: 20090623
  Receipt Date: 20090610
  Transmission Date: 20091009
  Serious: Yes (Hospitalization)
  Sender: FDA-Public Use
  Company Number: 2009-196390-NL

PATIENT
  Age: 28 Year
  Sex: Female

DRUGS (8)
  1. FOLLITROPIN BETA [Suspect]
     Indication: OVULATION INDUCTION
     Dosage: 150 IU ONCE/150 IU ONCE/225 IU ONCE/300 IU ONCE/300 IU ONCE
     Dates: start: 20080306
  2. FOLLITROPIN BETA [Suspect]
     Indication: OVULATION INDUCTION
     Dosage: 150 IU ONCE/150 IU ONCE/225 IU ONCE/300 IU ONCE/300 IU ONCE
     Dates: start: 20080309
  3. FOLLITROPIN BETA [Suspect]
     Indication: OVULATION INDUCTION
     Dosage: 150 IU ONCE/150 IU ONCE/225 IU ONCE/300 IU ONCE/300 IU ONCE
     Dates: start: 20080313
  4. FOLLITROPIN BETA [Suspect]
     Indication: OVULATION INDUCTION
     Dosage: 150 IU ONCE/150 IU ONCE/225 IU ONCE/300 IU ONCE/300 IU ONCE
     Dates: start: 20080314
  5. FOLLITROPIN BETA [Suspect]
     Indication: OVULATION INDUCTION
     Dosage: 150 IU ONCE/150 IU ONCE/225 IU ONCE/300 IU ONCE/300 IU ONCE
     Dates: start: 20080316
  6. CHORIONIC GONADOTROPIN [Suspect]
     Indication: HORMONE THERAPY
     Dosage: 1500 IU ONCE
     Dates: start: 20080319
  7. CHORIONIC GONADOTROPIN [Suspect]
     Indication: HORMONE THERAPY
     Dosage: 1500 IU ONCE
     Dates: start: 20080321
  8. CHORIONIC GONADOTROPIN [Suspect]
     Indication: HORMONE THERAPY
     Dosage: 1500 IU ONCE
     Dates: start: 20080324

REACTIONS (4)
  - ABORTION SPONTANEOUS [None]
  - DRUG EXPOSURE BEFORE PREGNANCY [None]
  - ECTOPIC PREGNANCY [None]
  - OVARIAN HYPERSTIMULATION SYNDROME [None]
